FAERS Safety Report 16516372 (Version 1)
Quarter: 2019Q3

REPORT INFORMATION
  Report Type: Spontaneous
  Country: US (occurrence: US)
  Receive Date: 20190702
  Receipt Date: 20190702
  Transmission Date: 20191004
  Serious: No
  Sender: FDA-Public Use
  Company Number: US-PFM-2018-15054

PATIENT

DRUGS (1)
  1. HEMANGEOL [Suspect]
     Active Substance: PROPRANOLOL HYDROCHLORIDE
     Indication: HAEMANGIOMA
     Dosage: 2.3 ML, BID (2/DAY) AT LEAST 9 HOURS APART DURING OR AFTER
     Route: 048
     Dates: start: 201806

REACTIONS (1)
  - Vomiting [Recovered/Resolved]
